FAERS Safety Report 4882274-6 (Version None)
Quarter: 2006Q1

REPORT INFORMATION
  Report Type: 
  Country: None (occurrence: None)
  Receive Date: 20060113
  Receipt Date: 20060113
  Transmission Date: 20060701
  Serious: No
  Sender: FDA-Public Use
  Company Number: None

PATIENT

DRUGS (10)
  1. ENDOSOL EXTRA [Suspect]
     Indication: CATARACT
     Dosage: IRRIGATION, TOPICAL
     Route: 061
     Dates: start: 20051108
  2. .. [Concomitant]
  3. 500CC BSS W/ EPINEPHRINE [Concomitant]
  4. BSS18ML TETRACAINE [Concomitant]
  5. VITRAX [Concomitant]
  6. HEALON ZYMAR [Concomitant]
  7. NEOSYNEPHRINE [Concomitant]
  8. ALPHAGAN [Concomitant]
  9. TIMOPTIC [Concomitant]
  10. XYLOCAINE [Concomitant]

REACTIONS (1)
  - UNEVALUABLE EVENT [None]
